FAERS Safety Report 8266417-2 (Version None)
Quarter: 2012Q2

REPORT INFORMATION
  Report Type: 
  Country: None (occurrence: None)
  Receive Date: 20120406
  Receipt Date: 20120328
  Transmission Date: 20120825
  Serious: Yes (Hospitalization)
  Sender: FDA-Public Use
  Company Number: IE-ROCHE-1054193

PATIENT
  Sex: Female

DRUGS (1)
  1. ROCEPHIN [Suspect]
     Indication: ARTHRITIS INFECTIVE
     Route: 042
     Dates: start: 20120320, end: 20120321

REACTIONS (5)
  - FATIGUE [None]
  - PALPITATIONS [None]
  - HEART RATE IRREGULAR [None]
  - ASTHENIA [None]
  - ARTHRALGIA [None]
